FAERS Safety Report 12458015 (Version 1)
Quarter: 2016Q2

REPORT INFORMATION
  Report Type: Report from Study
  Country: US (occurrence: US)
  Receive Date: 20160612
  Receipt Date: 20160612
  Transmission Date: 20160815
  Serious: No
  Sender: FDA-Public Use
  Company Number: US-AMGEN-USASL2016073342

PATIENT
  Age: 73 Year
  Sex: Male

DRUGS (1)
  1. ENBREL [Suspect]
     Active Substance: ETANERCEPT
     Indication: PRODUCT USED FOR UNKNOWN INDICATION
     Dosage: UNK
     Route: 065
     Dates: start: 201504

REACTIONS (8)
  - Sinusitis [Unknown]
  - Asthenia [Unknown]
  - Fatigue [Unknown]
  - Back disorder [Unknown]
  - Epistaxis [Not Recovered/Not Resolved]
  - Weight increased [Unknown]
  - Ear infection [Unknown]
  - Pain [Unknown]

NARRATIVE: CASE EVENT DATE: 2015
